FAERS Safety Report 4922056-X (Version None)
Quarter: 2006Q1

REPORT INFORMATION
  Report Type: 
  Country: None (occurrence: None)
  Receive Date: 20060222
  Receipt Date: 20060222
  Transmission Date: 20060701
  Serious: Yes (Hospitalization)
  Sender: FDA-Public Use
  Company Number: None

PATIENT
  Age: 89 Year
  Sex: Male
  Weight: 80.7403 kg

DRUGS (10)
  1. ENOXAPARIN SODIUM [Suspect]
     Indication: ANTICOAGULANT THERAPY
     Dosage: 30 MG SQ DAILY
     Route: 058
     Dates: start: 20051001
  2. WARFARIN [Suspect]
     Indication: ANTICOAGULANT THERAPY
     Dosage: 3 MG PO DAILY CHRONIC
     Route: 048
  3. COUMADIN [Concomitant]
  4. LEXAPRO [Concomitant]
  5. PREDNISONE [Concomitant]
  6. LANOXIN [Concomitant]
  7. LASIX [Concomitant]
  8. VICODIN [Concomitant]
  9. SENOKOT [Concomitant]
  10. PRILOSEC [Concomitant]

REACTIONS (3)
  - GASTROENTERITIS RADIATION [None]
  - INTERNATIONAL NORMALISED RATIO DECREASED [None]
  - RECTAL HAEMORRHAGE [None]
